FAERS Safety Report 16771547 (Version 10)
Quarter: 2023Q2

REPORT INFORMATION
  Report Type: Spontaneous
  Country: US (occurrence: US)
  Receive Date: 20190904
  Receipt Date: 20230417
  Transmission Date: 20230721
  Serious: No
  Sender: FDA-Public Use
  Company Number: US-PFIZER INC-2019377321

PATIENT
  Age: 73 Year
  Sex: Female
  Weight: 37.19 kg

DRUGS (9)
  1. COLESTIPOL HYDROCHLORIDE [Suspect]
     Active Substance: COLESTIPOL HYDROCHLORIDE
     Indication: Bile output abnormal
     Dosage: TWICE A DAY (15GRAMS PACKET AFTER BREAKFAST AND 1 TEASPOON AFTER DINNER)
     Dates: start: 2006
  2. COLESTIPOL HYDROCHLORIDE [Suspect]
     Active Substance: COLESTIPOL HYDROCHLORIDE
     Indication: Malabsorption
     Dosage: UNK UNK, 2X/DAY (1 TEASPOON OUT OF THE 5G)
     Route: 048
     Dates: start: 2007
  3. COLESTIPOL HYDROCHLORIDE [Suspect]
     Active Substance: COLESTIPOL HYDROCHLORIDE
     Indication: Cholecystectomy
     Dosage: TWICE A DAY (UP TO 1 PACK TWICE A DAY/ 1 TEASPOON TWICE A DAY/ 15GR PKT AFTER BREAKFAST AND 1 TSP A)
     Dates: start: 2012
  4. COLESTIPOL HYDROCHLORIDE [Suspect]
     Active Substance: COLESTIPOL HYDROCHLORIDE
     Dosage: 5 G, 2X/DAY
     Route: 048
     Dates: start: 2018
  5. COLESTIPOL HYDROCHLORIDE [Suspect]
     Active Substance: COLESTIPOL HYDROCHLORIDE
     Dosage: UNK
  6. COLESTIPOL HYDROCHLORIDE [Suspect]
     Active Substance: COLESTIPOL HYDROCHLORIDE
     Dosage: UNK
  7. COLESTIPOL HYDROCHLORIDE [Suspect]
     Active Substance: COLESTIPOL HYDROCHLORIDE
     Dosage: UNK
  8. COLESTIPOL HYDROCHLORIDE [Suspect]
     Active Substance: COLESTIPOL HYDROCHLORIDE
     Dosage: UNK
  9. COLESTIPOL HYDROCHLORIDE [Suspect]
     Active Substance: COLESTIPOL HYDROCHLORIDE
     Dosage: UNK

REACTIONS (1)
  - Drug ineffective [Recovered/Resolved]

NARRATIVE: CASE EVENT DATE: 20190701
